FAERS Safety Report 15359554 (Version 1)
Quarter: 2018Q3

REPORT INFORMATION
  Report Type: Report from Study
  Country: DE (occurrence: DE)
  Receive Date: 20180907
  Receipt Date: 20180907
  Transmission Date: 20181010
  Serious: Yes (Other)
  Sender: FDA-Public Use
  Company Number: DE-BRISTOL-MYERS SQUIBB COMPANY-BMS-2018-081949

PATIENT
  Age: 51 Year
  Sex: Male

DRUGS (2)
  1. NIVOLUMAB [Suspect]
     Active Substance: NIVOLUMAB
     Indication: MALIGNANT MELANOMA
     Dosage: 1.0 MG/KG, UNK
     Route: 065
     Dates: start: 20180619, end: 20180710
  2. IPILIMUMAB [Suspect]
     Active Substance: IPILIMUMAB
     Indication: MALIGNANT MELANOMA
     Dosage: 3.0 MG/KG, UNK
     Route: 065
     Dates: start: 20180619, end: 20180710

REACTIONS (1)
  - Autoimmune disorder [Unknown]
